FAERS Safety Report 18272684 (Version 3)
Quarter: 2020Q4

REPORT INFORMATION
  Report Type: Spontaneous
  Country: US (occurrence: US)
  Receive Date: 20200916
  Receipt Date: 20201027
  Transmission Date: 20210113
  Serious: Yes (Other)
  Sender: FDA-Public Use
  Company Number: US-GLAXOSMITHKLINE-US2020181862

PATIENT
  Age: 51 Year
  Sex: Female

DRUGS (1)
  1. BENLYSTA [Suspect]
     Active Substance: BELIMUMAB
     Indication: SYSTEMIC LUPUS ERYTHEMATOSUS
     Dosage: UNK
     Route: 058
     Dates: start: 202001

REACTIONS (7)
  - Weight decreased [Unknown]
  - Accidental exposure to product [Recovered/Resolved]
  - Exposure via skin contact [Unknown]
  - Pain [Unknown]
  - Systemic lupus erythematosus [Not Recovered/Not Resolved]
  - Product complaint [Unknown]
  - Injection site haemorrhage [Recovered/Resolved]

NARRATIVE: CASE EVENT DATE: 20200909
